FAERS Safety Report 8762150 (Version 3)
Quarter: 2012Q4

REPORT INFORMATION
  Report Type: 
  Country: US (occurrence: US)
  Receive Date: 20120824
  Receipt Date: 20120927
  Transmission Date: 20130627
  Serious: Yes (Hospitalization)
  Sender: FDA-Public Use
  Company Number: US-ELI_LILLY_AND_COMPANY-US201108004184

PATIENT
  Age: 84 None
  Sex: Female

DRUGS (1)
  1. FORTEO [Suspect]
     Indication: OSTEOPOROSIS
     Dosage: 20 u, qd
     Route: 065
     Dates: start: 20110731

REACTIONS (5)
  - Gastric ulcer haemorrhage [Unknown]
  - Fall [Unknown]
  - Ankle fracture [Unknown]
  - Malaise [Unknown]
  - Injection site bruising [Not Recovered/Not Resolved]
